FAERS Safety Report 8086027-X (Version None)
Quarter: 2012Q1

REPORT INFORMATION
  Report Type: 
  Country: None (occurrence: None)
  Receive Date: 20120128
  Receipt Date: 20110609
  Transmission Date: 20120608
  Serious: No
  Sender: FDA-Public Use
  Company Number: US-ABBOTT-11P-163-0731413-00

PATIENT
  Age: 46 Year
  Sex: Male

DRUGS (9)
  1. SODIUM CHLORIDE [Concomitant]
     Indication: MALABSORPTION
     Route: 048
  2. VENFER INFUSION [Concomitant]
     Indication: IRON DEFICIENCY
     Route: 042
  3. HUMIRA [Suspect]
     Indication: CROHN'S DISEASE
     Dates: start: 20110317
  4. HUMAN CHORIONIC GONADOTROPIN (HCG) [Concomitant]
     Indication: HYPOPITUITARISM
     Route: 050
  5. PREDNISONE TAB [Concomitant]
     Indication: CROHN'S DISEASE
     Dosage: WITH TAPERING SCHEDULE
     Dates: start: 20110606
  6. PENTASA [Concomitant]
     Indication: CROHN'S DISEASE
     Route: 048
  7. ADVAIR DISKUS 100/50 [Concomitant]
     Indication: COUGH
     Dosage: 500/50 2 INHALATIONS DAILY
     Dates: start: 20110301
  8. MERCAPTOPURINE [Concomitant]
     Indication: CROHN'S DISEASE
     Route: 048
  9. POTASSIUM [Concomitant]
     Indication: MALABSORPTION
     Route: 048

REACTIONS (4)
  - COUGH [None]
  - HAEMATOCHEZIA [None]
  - NASOPHARYNGITIS [None]
  - PAIN [None]
